FAERS Safety Report 14846647 (Version 1)
Quarter: 2018Q2

REPORT INFORMATION
  Report Type: Spontaneous
  Country: US (occurrence: US)
  Receive Date: 20180504
  Receipt Date: 20180504
  Transmission Date: 20180711
  Serious: No
  Sender: FDA-Public Use
  Company Number: US-TEVA-2018-US-888336

PATIENT
  Sex: Male

DRUGS (1)
  1. AMOXAPINE. [Suspect]
     Active Substance: AMOXAPINE
     Indication: DEPRESSION
     Dosage: DOSE STRENGTH: 50
     Route: 065
     Dates: end: 201801

REACTIONS (1)
  - Depression [Recovered/Resolved]
